FAERS Safety Report 9372207 (Version 1)
Quarter: 2013Q2

REPORT INFORMATION
  Report Type: Spontaneous
  Country: FR (occurrence: FR)
  Receive Date: 20130627
  Receipt Date: 20130627
  Transmission Date: 20140414
  Serious: Yes (Hospitalization)
  Sender: FDA-Public Use
  Company Number: FR-JNJFOC-20130608718

PATIENT
  Age: 83 Year
  Sex: Female

DRUGS (4)
  1. REMINYL LP [Suspect]
     Indication: DEMENTIA ALZHEIMER^S TYPE
     Route: 048
     Dates: start: 20081219, end: 20130517
  2. DETENSIEL [Suspect]
     Indication: HYPERTENSION
     Dosage: HALF PER DAY
     Route: 048
     Dates: start: 20080916
  3. TAREG [Suspect]
     Indication: HYPERTENSION
     Route: 048
     Dates: start: 20080915
  4. ALPRAZOLAM [Suspect]
     Indication: ANXIETY
     Route: 048
     Dates: start: 20130422

REACTIONS (4)
  - Nervous system disorder [Recovered/Resolved with Sequelae]
  - Transient ischaemic attack [Unknown]
  - Frontotemporal dementia [Unknown]
  - Hemiparesis [Unknown]
